FAERS Safety Report 13974036 (Version 3)
Quarter: 2017Q4

REPORT INFORMATION
  Report Type: Spontaneous
  Country: MY (occurrence: MY)
  Receive Date: 20170915
  Receipt Date: 20171016
  Transmission Date: 20180321
  Serious: Yes (Life-Threatening)
  Sender: FDA-Public Use
  Company Number: MY-TORRENT-00000119

PATIENT
  Age: 19 Year
  Sex: Male

DRUGS (4)
  1. TORLEVA [Suspect]
     Active Substance: LEVETIRACETAM
  2. EPILIM [Concomitant]
     Active Substance: VALPROATE SODIUM
  3. KEPPRA [Concomitant]
     Active Substance: LEVETIRACETAM
  4. CARBAMAZEPINE. [Concomitant]
     Active Substance: CARBAMAZEPINE

REACTIONS (2)
  - Drug ineffective [Unknown]
  - Product substitution issue [Unknown]

NARRATIVE: CASE EVENT DATE: 201706
